FAERS Safety Report 6014234-6 (Version None)
Quarter: 2008Q4

REPORT INFORMATION
  Report Type: 
  Country: None (occurrence: None)
  Receive Date: 20081219
  Receipt Date: 20080911
  Transmission Date: 20090506
  Serious: No
  Sender: FDA-Public Use
  Company Number: A0712442A

PATIENT
  Age: 79 Year
  Sex: Male

DRUGS (5)
  1. AVODART [Suspect]
     Indication: BENIGN PROSTATIC HYPERPLASIA
     Route: 048
     Dates: start: 20070601, end: 20071226
  2. ANTI-HYPERCHOLESTEROLAEMIC [Concomitant]
  3. UROXATRAL [Concomitant]
  4. DIABETES MEDICATION [Concomitant]
  5. ANTIHYPERTENSIVE [Concomitant]

REACTIONS (5)
  - DRY SKIN [None]
  - PAIN [None]
  - RASH [None]
  - SKIN MASS [None]
  - WEIGHT LOSS POOR [None]
